FAERS Safety Report 6272129-7 (Version None)
Quarter: 2009Q3

REPORT INFORMATION
  Report Type: 
  Country: None (occurrence: None)
  Receive Date: 20090715
  Receipt Date: 20090708
  Transmission Date: 20100115
  Serious: Yes (Other)
  Sender: FDA-Public Use
  Company Number: 322419

PATIENT
  Age: 76 Year
  Sex: Female

DRUGS (12)
  1. VANCOMYCIN [Suspect]
     Indication: STAPHYLOCOCCAL BACTERAEMIA
     Dosage: 1 G, 24 HOUR, INTRAVENOUS
     Route: 042
  2. (FUROSEMIDE) [Concomitant]
  3. LEVOTHYROXINE SODIUM [Concomitant]
  4. (OMEPRAZOLE) [Concomitant]
  5. METFORMIN HCL [Concomitant]
  6. NADOLOL [Concomitant]
  7. NIFEDIPINE [Concomitant]
  8. SIMVASTATIN [Concomitant]
  9. (SPIRONOLACTONE) [Concomitant]
  10. (TRAMADOL) [Concomitant]
  11. SENNA-MINT WAF [Concomitant]
  12. (CEFTRIAXONE) [Concomitant]

REACTIONS (11)
  - BLISTER [None]
  - BLOOD BILIRUBIN INCREASED [None]
  - BLOOD PRESSURE DIASTOLIC DECREASED [None]
  - BLOOD UREA INCREASED [None]
  - ENDOCARDITIS [None]
  - INTRACARDIAC THROMBUS [None]
  - LEUKOCYTOCLASTIC VASCULITIS [None]
  - LYMPHADENOPATHY [None]
  - PNEUMONIA [None]
  - RASH PAPULAR [None]
  - SEPTIC EMBOLUS [None]
